FAERS Safety Report 7966263-0 (Version None)
Quarter: 2011Q4

REPORT INFORMATION
  Report Type: 
  Country: None (occurrence: None)
  Receive Date: 20111208
  Receipt Date: 20111203
  Transmission Date: 20120403
  Serious: Yes (Hospitalization)
  Sender: FDA-Public Use
  Company Number: PHEH2011US010930

PATIENT
  Sex: Female

DRUGS (2)
  1. GILENYA [Suspect]
     Indication: MULTIPLE SCLEROSIS
     Dosage: 0.5 MG, DAILY
     Route: 048
     Dates: start: 20110301
  2. STEROIDS NOS [Concomitant]
     Indication: OPTIC NEURITIS
     Dosage: UNK UKN, UNK
     Route: 042

REACTIONS (3)
  - HEADACHE [None]
  - OPTIC NEURITIS [None]
  - VOMITING [None]
